FAERS Safety Report 10014658 (Version 2)
Quarter: 2014Q2

REPORT INFORMATION
  Report Type: Spontaneous
  Country: NL (occurrence: NL)
  Receive Date: 20140317
  Receipt Date: 20140520
  Transmission Date: 20141212
  Serious: Yes (Other)
  Sender: FDA-Public Use
  Company Number: NL-PFIZER INC-2014075784

PATIENT
  Age: 51 Year
  Sex: Female

DRUGS (5)
  1. CELEBREX [Suspect]
     Indication: ARTHRALGIA
     Dosage: 200 MG, 1X/DAY
     Dates: start: 20140205
  2. HYDROXOCOBALAMINE [Concomitant]
     Dosage: 1000 UG, EVERY 2 MONTHS
     Dates: start: 20110222
  3. MADOPAR [Concomitant]
     Dosage: 125 MG, 3X/DAY
     Dates: start: 20120413
  4. REQUIP [Concomitant]
     Dosage: 8 MG, 1X/DAY
     Dates: start: 20120413
  5. LEVONORGESTREL W/ETHINYLESTRADIOL [Concomitant]
     Dosage: 1 DF, CYCLIC
     Dates: start: 20111121

REACTIONS (1)
  - Parkinson^s disease [Recovered/Resolved]
